FAERS Safety Report 4860016-8 (Version None)
Quarter: 2005Q4

REPORT INFORMATION
  Report Type: 
  Country: None (occurrence: None)
  Receive Date: 20051219
  Receipt Date: 20051208
  Transmission Date: 20060501
  Serious: Yes (Hospitalization)
  Sender: FDA-Public Use
  Company Number: 2005SE07086

PATIENT
  Sex: Male

DRUGS (1)
  1. NEXIUM [Suspect]
     Indication: GASTRIC ULCER
     Route: 042
     Dates: start: 20051128

REACTIONS (3)
  - COLITIS [None]
  - INTESTINAL ULCER [None]
  - STEVENS-JOHNSON SYNDROME [None]
